FAERS Safety Report 8612575 (Version 2)
Quarter: 2016Q1

REPORT INFORMATION
  Report Type: Spontaneous
  Country: CA (occurrence: None)
  Receive Date: 20120530
  Receipt Date: 20160211
  Transmission Date: 20160526
  Serious: Yes (Death, Other)
  Sender: FDA-Public Use
  Company Number: ADR-2012-00960

PATIENT
  Sex: Male

DRUGS (1)
  1. LIORESAL [Suspect]
     Active Substance: BACLOFEN
     Dosage: 68.3 MCG/DAY

REACTIONS (1)
  - Myocardial infarction [None]
